FAERS Safety Report 16810030 (Version 3)
Quarter: 2020Q1

REPORT INFORMATION
  Report Type: Report from Study
  Country: US (occurrence: US)
  Receive Date: 20190916
  Receipt Date: 20200130
  Transmission Date: 20200409
  Serious: Yes (Other)
  Sender: FDA-Public Use
  Company Number: PHEH2019US037978

PATIENT
  Sex: Female

DRUGS (1)
  1. COSENTYX [Suspect]
     Active Substance: SECUKINUMAB
     Indication: PRODUCT USED FOR UNKNOWN INDICATION
     Route: 065

REACTIONS (8)
  - Condition aggravated [Unknown]
  - Macule [Unknown]
  - Psoriasis [Unknown]
  - Skin plaque [Unknown]
  - Diabetes mellitus [Unknown]
  - Blood glucose increased [Unknown]
  - Discomfort [Unknown]
  - Skin exfoliation [Unknown]
